FAERS Safety Report 5667647-6 (Version None)
Quarter: 2008Q1

REPORT INFORMATION
  Report Type: 
  Country: None (occurrence: None)
  Receive Date: 20080315
  Receipt Date: 20080129
  Transmission Date: 20080703
  Serious: No
  Sender: FDA-Public Use
  Company Number: US-ABBOTT-08P-163-0435776-00

PATIENT
  Sex: Female
  Weight: 59.02 kg

DRUGS (2)
  1. HUMIRA [Suspect]
     Indication: RHEUMATOID ARTHRITIS
     Route: 058
     Dates: start: 20071001, end: 20080119
  2. HUMIRA [Suspect]
     Route: 058
     Dates: start: 20080127

REACTIONS (3)
  - ACCIDENTAL EXPOSURE [None]
  - COUGH [None]
  - INJECTION SITE PAIN [None]
